FAERS Safety Report 10661346 (Version 1)
Quarter: 2014Q4

REPORT INFORMATION
  Report Type: Spontaneous
  Country: US (occurrence: US)
  Receive Date: 20141218
  Receipt Date: 20141218
  Transmission Date: 20150529
  Serious: Yes (Hospitalization, Other)
  Sender: FDA-Public Use
  Company Number: US-JNJFOC-20141206630

PATIENT
  Age: 58 Year
  Sex: Female
  Weight: 52.62 kg

DRUGS (12)
  1. OXYCONTIN [Concomitant]
     Active Substance: OXYCODONE HYDROCHLORIDE
     Indication: PAIN
     Route: 065
  2. PROTONIX [Concomitant]
     Active Substance: PANTOPRAZOLE SODIUM
     Route: 065
  3. POTASSIUM [Concomitant]
     Active Substance: POTASSIUM
     Route: 065
  4. SINGULAIR [Concomitant]
     Active Substance: MONTELUKAST SODIUM
     Route: 065
  5. ROBAXIN [Concomitant]
     Active Substance: METHOCARBAMOL
     Route: 065
  6. HYDRALAZINE [Concomitant]
     Active Substance: HYDRALAZINE HYDROCHLORIDE
     Route: 065
  7. RITALIN [Concomitant]
     Active Substance: METHYLPHENIDATE HYDROCHLORIDE
     Route: 065
  8. SIMPONI [Suspect]
     Active Substance: GOLIMUMAB
     Indication: RHEUMATOID ARTHRITIS
     Dosage: STARTED COUPLE YEARS AGO (2 YRS)
     Route: 058
  9. LASIX [Concomitant]
     Active Substance: FUROSEMIDE
     Route: 065
  10. CELEBREX [Concomitant]
     Active Substance: CELECOXIB
     Dosage: CAN USUALLY TELL BY HER LEGS??IF SHE NEED IT
     Route: 065
  11. RANITIDINE [Concomitant]
     Active Substance: RANITIDINE\RANITIDINE HYDROCHLORIDE
     Route: 065
  12. DICYCLOMINE [Concomitant]
     Active Substance: DICYCLOMINE HYDROCHLORIDE
     Route: 065

REACTIONS (14)
  - Oedema peripheral [Unknown]
  - Foot deformity [Unknown]
  - Drug dose omission [Unknown]
  - Electrolyte imbalance [Recovered/Resolved]
  - Fungal infection [Unknown]
  - Device malfunction [Unknown]
  - Liver disorder [Unknown]
  - Arthralgia [Unknown]
  - Arthralgia [Unknown]
  - Seizure [Unknown]
  - Diarrhoea [Unknown]
  - Dehydration [Unknown]
  - Hernia [Unknown]
  - Nausea [Unknown]

NARRATIVE: CASE EVENT DATE: 2013
